FAERS Safety Report 23077593 (Version 1)
Quarter: 2023Q4

REPORT INFORMATION
  Report Type: Spontaneous
  Country: US (occurrence: US)
  Receive Date: 20231018
  Receipt Date: 20231018
  Transmission Date: 20240110
  Serious: Yes (Hospitalization)
  Sender: FDA-Public Use
  Company Number: US-ENDO PHARMACEUTICALS INC-2023-005258

PATIENT
  Age: 55 Year
  Sex: Male

DRUGS (1)
  1. DEXMEDETOMIDINE HYDROCHLORIDE [Suspect]
     Active Substance: DEXMEDETOMIDINE HYDROCHLORIDE
     Indication: Intraoperative care
     Dosage: UNK UNKNOWN, UNKNOWN (0.5 ?G/KG/H WAS STARTED AT THE INCISION)
     Route: 041

REACTIONS (1)
  - Diabetes insipidus [Recovered/Resolved]
